FAERS Safety Report 11363003 (Version 1)
Quarter: 2015Q3

REPORT INFORMATION
  Report Type: Spontaneous
  Country: US (occurrence: None)
  Receive Date: 20150807
  Receipt Date: 20150807
  Transmission Date: 20151125
  Serious: Yes (Hospitalization)
  Sender: FDA-Public Use
  Company Number: None

PATIENT
  Age: 83 Year
  Sex: Female

DRUGS (1)
  1. CAPECITABINE 500MG TEVA [Suspect]
     Active Substance: CAPECITABINE
     Indication: NEOPLASM MALIGNANT
     Dosage: 2TAB PO BIDX 7 ON THEN X7 OFF
     Route: 048

REACTIONS (5)
  - Abdominal distension [None]
  - Flatulence [None]
  - Fatigue [None]
  - Diarrhoea [None]
  - Influenza like illness [None]

NARRATIVE: CASE EVENT DATE: 20150731
